FAERS Safety Report 8656421 (Version 4)
Quarter: 2014Q1

REPORT INFORMATION
  Report Type: Spontaneous
  Country: US (occurrence: US)
  Receive Date: 20120709
  Receipt Date: 20140220
  Transmission Date: 20141002
  Serious: Yes (Hospitalization, Other)
  Sender: FDA-Public Use
  Company Number: US-AMGEN-USASP2012037402

PATIENT
  Age: 59 Year
  Sex: Female

DRUGS (4)
  1. ENBREL [Suspect]
     Indication: RHEUMATOID ARTHRITIS
     Dosage: 50 MG, QWK
     Route: 058
     Dates: start: 20110101
  2. METHOTREXATE [Concomitant]
     Dosage: 20 MG, QWK (8 TABLETS (2.5 MG EACH) ONCE A WEEK)
     Route: 048
     Dates: start: 20110101
  3. CALCIUM [Concomitant]
     Dosage: UNK
  4. VITAMIN D                          /00107901/ [Concomitant]
     Dosage: UNK

REACTIONS (15)
  - Chondropathy [Recovered/Resolved]
  - Injection site abscess [Unknown]
  - Osteoarthritis [Unknown]
  - Back disorder [Unknown]
  - Joint swelling [Unknown]
  - Local swelling [Unknown]
  - Pain in extremity [Unknown]
  - Intervertebral disc protrusion [Unknown]
  - Reflux gastritis [Recovered/Resolved]
  - Hypersensitivity [Recovered/Resolved]
  - Back pain [Not Recovered/Not Resolved]
  - Muscle spasms [Not Recovered/Not Resolved]
  - Infection [Not Recovered/Not Resolved]
  - Injection site haemorrhage [Unknown]
  - Injection site pain [Recovered/Resolved]
